FAERS Safety Report 8147590-3 (Version None)
Quarter: 2012Q1

REPORT INFORMATION
  Report Type: 
  Country: None (occurrence: None)
  Receive Date: 20120218
  Receipt Date: 20110228
  Transmission Date: 20120608
  Serious: No
  Sender: FDA-Public Use
  Company Number: US-ALLERGAN-1102902US

PATIENT
  Age: 53 Year
  Sex: Female

DRUGS (3)
  1. JUVEDERM [Suspect]
     Indication: SKIN WRINKLING
     Dosage: UNK
     Dates: start: 20110210, end: 20110210
  2. COUGH MEDICINE UNSPECIFIED [Suspect]
     Indication: PAIN
     Dosage: UNK
     Route: 048
     Dates: end: 20110221
  3. BOTOX COSMETIC [Suspect]
     Indication: SKIN WRINKLING
     Dosage: 8 UNITS, SINGLE
     Route: 030
     Dates: start: 20110210, end: 20110210

REACTIONS (6)
  - LYMPHADENOPATHY [None]
  - FEELING ABNORMAL [None]
  - DYSPHAGIA [None]
  - HYPERSENSITIVITY [None]
  - PHARYNGEAL OEDEMA [None]
  - ANXIETY [None]
